FAERS Safety Report 17851637 (Version 3)
Quarter: 2020Q3

REPORT INFORMATION
  Report Type: Report from Study
  Country: DK (occurrence: DK)
  Receive Date: 20200602
  Receipt Date: 20200713
  Transmission Date: 20201103
  Serious: Yes (Other)
  Sender: FDA-Public Use
  Company Number: DK-ROCHE-2607146

PATIENT
  Age: 55 Year
  Sex: Male
  Weight: 78.3 kg

DRUGS (24)
  1. TOCILIZUMAB. [Suspect]
     Active Substance: TOCILIZUMAB
     Indication: COVID-19 PNEUMONIA
     Dosage: DATE OF MOST RECENT DOSE OF  TOCILIZUMAB PRIOR TO EVENT ONSET: 19/APR/2020
     Route: 042
     Dates: start: 20200419
  2. VITAMIN B [Concomitant]
     Active Substance: VITAMIN B
     Dates: start: 20200410, end: 20200425
  3. LACTULOSE. [Concomitant]
     Active Substance: LACTULOSE
     Dosage: AS NEEDED
     Dates: start: 20200414, end: 20200416
  4. PANTOPRAZOLE [Concomitant]
     Active Substance: PANTOPRAZOLE
     Indication: PROPHYLAXIS AGAINST GASTROINTESTINAL ULCER
     Dates: start: 20200412, end: 20200420
  5. PANTOPRAZOLE [Concomitant]
     Active Substance: PANTOPRAZOLE
     Dates: start: 20200420, end: 20200505
  6. ENOXAPARIN [Concomitant]
     Active Substance: ENOXAPARIN
     Indication: THROMBOSIS PROPHYLAXIS
     Dates: start: 20200409, end: 20200413
  7. BRENTAN (DENMARK) [Concomitant]
     Indication: RASH
     Dates: start: 20200425, end: 20200505
  8. ASCORBIC ACID. [Concomitant]
     Active Substance: ASCORBIC ACID
     Dates: start: 20200417, end: 20200425
  9. LAXOBERAL [Concomitant]
     Active Substance: SODIUM PICOSULFATE
     Dates: start: 20200403, end: 20200416
  10. SERENASE (DENMARK) [Concomitant]
     Indication: CONFUSIONAL STATE
     Dates: start: 20200414, end: 20200414
  11. ERYTHROCYTES [Concomitant]
     Active Substance: HUMAN RED BLOOD CELL
     Indication: ANAEMIA
     Dates: start: 20200420, end: 20200420
  12. TINZAPARIN [Concomitant]
     Active Substance: TINZAPARIN
     Indication: THROMBOSIS PROPHYLAXIS
     Dates: start: 20200414, end: 20200505
  13. GANGIDEN [Concomitant]
     Dates: start: 20200405, end: 20200413
  14. ZOPICLONE [Concomitant]
     Active Substance: ZOPICLONE
     Indication: INSOMNIA
     Dosage: AS NEEDED
     Dates: start: 20200412, end: 20200425
  15. NYSTATIN. [Concomitant]
     Active Substance: NYSTATIN
     Indication: ORAL CANDIDIASIS
     Dates: start: 20200412, end: 20200420
  16. ONDANSETRON [Concomitant]
     Active Substance: ONDANSETRON
     Dosage: AS NEEDED
     Dates: start: 20200424, end: 20200425
  17. FUROSEMIDE. [Concomitant]
     Active Substance: FUROSEMIDE
     Indication: POLYURIA
     Dosage: AS NEEDED
     Dates: start: 20200413, end: 20200416
  18. NALOXEGOL [Concomitant]
     Active Substance: NALOXEGOL
     Indication: CONSTIPATION
     Dates: start: 20200405, end: 20200413
  19. PARACETAMOL [Concomitant]
     Active Substance: ACETAMINOPHEN
     Indication: PAIN
     Dates: start: 20200412, end: 20200420
  20. MELATONIN [Concomitant]
     Active Substance: MELATONIN
     Indication: INSOMNIA
     Dates: start: 20200417, end: 20200425
  21. CLONIDINE. [Concomitant]
     Active Substance: CLONIDINE
     Indication: WITHDRAWAL SYNDROME
     Dates: start: 20200413, end: 20200422
  22. FOLIC ACID. [Concomitant]
     Active Substance: FOLIC ACID
     Indication: VITAMIN SUPPLEMENTATION
     Dates: start: 20200417, end: 20200425
  23. MORPHINE [Concomitant]
     Active Substance: MORPHINE
     Indication: PAIN
     Dates: start: 20200414, end: 20200414
  24. THIAMINE. [Concomitant]
     Active Substance: THIAMINE
     Dates: start: 20200410, end: 20200425

REACTIONS (1)
  - Hypercholesterolaemia [Not Recovered/Not Resolved]

NARRATIVE: CASE EVENT DATE: 20200420
